FAERS Safety Report 26073559 (Version 1)
Quarter: 2025Q4

REPORT INFORMATION
  Report Type: Spontaneous
  Country: EU (occurrence: EU)
  Receive Date: 20251121
  Receipt Date: 20251121
  Transmission Date: 20260118
  Serious: No
  Sender: ALKEM
  Company Number: EU-ALKEM LABORATORIES LIMITED-GR-ALKEM-2025-06059

PATIENT
  Age: 30 Year
  Sex: Male

DRUGS (3)
  1. FOSFOMYCIN [Suspect]
     Active Substance: FOSFOMYCIN
     Indication: Bacterial prostatitis
     Dosage: 3 GRAM, QD
     Route: 048
  2. FOSFOMYCIN [Suspect]
     Active Substance: FOSFOMYCIN
     Dosage: 3 GRAM, QOD (EVERY 48 HOUR)
     Route: 048
  3. FOSFOMYCIN [Suspect]
     Active Substance: FOSFOMYCIN
     Dosage: 1 DOSAGE FORM, QOD (EVERY 48 H)
     Route: 048

REACTIONS (2)
  - Abdominal discomfort [Recovering/Resolving]
  - Diarrhoea [Recovering/Resolving]
